FAERS Safety Report 4684225-6 (Version None)
Quarter: 2005Q2

REPORT INFORMATION
  Report Type: 
  Country: None (occurrence: None)
  Receive Date: 20050531
  Receipt Date: 20050119
  Transmission Date: 20051028
  Serious: Yes (Hospitalization, Other)
  Sender: FDA-Public Use
  Company Number: USA041081038

PATIENT
  Age: 44 Year
  Sex: Female
  Weight: 75 kg

DRUGS (1)
  1. ZYPREXA [Suspect]
     Indication: BIPOLAR I DISORDER
     Dosage: 10 MG
     Dates: end: 20041011

REACTIONS (4)
  - DIABETIC KETOACIDOSIS [None]
  - NAUSEA [None]
  - POLYDIPSIA [None]
  - POLYURIA [None]
